FAERS Safety Report 20079450 (Version 1)
Quarter: 2021Q4

REPORT INFORMATION
  Report Type: Report from Study
  Country: US (occurrence: US)
  Receive Date: 20211117
  Receipt Date: 20211117
  Transmission Date: 20220303
  Serious: Yes (Other)
  Sender: FDA-Public Use
  Company Number: US-NOVARTISTESTPH-NVSC2019US104593

PATIENT
  Sex: Female

DRUGS (1)
  1. LUTATHERA [Suspect]
     Active Substance: LUTETIUM OXODOTREOTIDE LU-177
     Indication: Carcinoid tumour
     Dosage: UNK
     Route: 065
     Dates: start: 20190109

REACTIONS (4)
  - Neutropenia [Unknown]
  - Sleep apnoea syndrome [Unknown]
  - Asthma [Unknown]
  - Nausea [Unknown]
